FAERS Safety Report 11155727 (Version 1)
Quarter: 2015Q2

REPORT INFORMATION
  Report Type: Spontaneous
  Country: US (occurrence: None)
  Receive Date: 20150601
  Receipt Date: 20150601
  Transmission Date: 20150821
  Serious: Yes (Other)
  Sender: FDA-Public Use
  Company Number: None

PATIENT
  Sex: Male

DRUGS (1)
  1. OTEZLA [Suspect]
     Active Substance: APREMILAST
     Indication: ERYTHEMA MULTIFORME
     Route: 048

REACTIONS (3)
  - Disease recurrence [None]
  - Psoriasis [None]
  - Unevaluable event [None]
